FAERS Safety Report 6632072-8 (Version None)
Quarter: 2010Q1

REPORT INFORMATION
  Report Type: 
  Country: None (occurrence: None)
  Receive Date: 20100312
  Receipt Date: 20090611
  Transmission Date: 20100710
  Serious: No
  Sender: FDA-Public Use
  Company Number: US-BIOGENIDEC-2009BI018172

PATIENT
  Age: 41 Year
  Sex: Female

DRUGS (4)
  1. AVONEX [Suspect]
     Indication: MULTIPLE SCLEROSIS
     Route: 030
     Dates: start: 20090507, end: 20090513
  2. AVONEX [Suspect]
     Route: 030
     Dates: start: 20090514, end: 20090520
  3. AVONEX [Suspect]
     Route: 030
     Dates: start: 20090521, end: 20090528
  4. AVONEX [Suspect]
     Route: 030
     Dates: start: 20090529

REACTIONS (4)
  - BACK PAIN [None]
  - CHILLS [None]
  - PAIN [None]
  - PAIN IN EXTREMITY [None]
